FAERS Safety Report 17466446 (Version 2)
Quarter: 2020Q1

REPORT INFORMATION
  Report Type: Spontaneous
  Country: DE (occurrence: DE)
  Receive Date: 20200227
  Receipt Date: 20200228
  Transmission Date: 20200409
  Serious: Yes (Life-Threatening, Hospitalization, Disabling, Congenital Anomaly, Other)
  Sender: FDA-Public Use
  Company Number: DE-MYLANLABS-2020M1021243

PATIENT
  Sex: Male
  Weight: 3.2 kg

DRUGS (1)
  1. CLOZAPINE. [Suspect]
     Active Substance: CLOZAPINE
     Indication: SCHIZOPHRENIA
     Dosage: UNKLAR (MUTTER NICHT MEHR ZURECHNUNGSF?HIG)
     Route: 015
     Dates: start: 20180101, end: 20191231

REACTIONS (5)
  - Hypoplastic left heart syndrome [Recovered/Resolved with Sequelae]
  - Atrioventricular septal defect [Unknown]
  - Aortic valve atresia [Unknown]
  - Foetal exposure during pregnancy [Recovered/Resolved]
  - Aortic disorder [Unknown]

NARRATIVE: CASE EVENT DATE: 2019
